FAERS Safety Report 7514267-4 (Version None)
Quarter: 2011Q2

REPORT INFORMATION
  Report Type: 
  Country: None (occurrence: None)
  Receive Date: 20110601
  Receipt Date: 20110523
  Transmission Date: 20111010
  Serious: Yes (Hospitalization)
  Sender: FDA-Public Use
  Company Number: US-BIOGENIDEC-2011BI002090

PATIENT
  Age: 46 Year
  Sex: Female

DRUGS (1)
  1. TYSABRI [Suspect]
     Indication: MULTIPLE SCLEROSIS
     Route: 042
     Dates: start: 20061025, end: 20110430

REACTIONS (8)
  - GASTROENTERITIS [None]
  - TACHYCARDIA [None]
  - ABDOMINAL PAIN [None]
  - APHAGIA [None]
  - BLOOD POTASSIUM DECREASED [None]
  - NAUSEA [None]
  - TREMOR [None]
  - MEMORY IMPAIRMENT [None]
